FAERS Safety Report 9306989 (Version 1)
Quarter: 2013Q2

REPORT INFORMATION
  Report Type: Spontaneous
  Country: FR (occurrence: FR)
  Receive Date: 20130523
  Receipt Date: 20130523
  Transmission Date: 20140414
  Serious: Yes (Death)
  Sender: FDA-Public Use
  Company Number: FR-009507513-1305FRA010625

PATIENT
  Age: 59 Year
  Sex: Male

DRUGS (5)
  1. VICTRELIS [Suspect]
     Dosage: 4 DF, TID
     Route: 048
     Dates: start: 20121016, end: 20130321
  2. PEGINTERFERON ALFA-2B [Suspect]
     Dosage: 180 MICROGRAM, QW
     Route: 058
     Dates: start: 20120918, end: 20130321
  3. COPEGUS [Suspect]
     Dosage: 1000 MG, QD
     Route: 048
     Dates: start: 20120918, end: 20121029
  4. COPEGUS [Suspect]
     Dosage: 800 MG, QD
     Route: 048
     Dates: start: 20121030, end: 20130305
  5. COPEGUS [Suspect]
     Dosage: 600 MG, QD
     Route: 048
     Dates: start: 20130306, end: 20130321

REACTIONS (3)
  - Death [Fatal]
  - Anaemia [Unknown]
  - Asthenia [Fatal]
